FAERS Safety Report 25433862 (Version 2)
Quarter: 2025Q3

REPORT INFORMATION
  Report Type: Report from Study
  Country: NZ (occurrence: NZ)
  Receive Date: 20250613
  Receipt Date: 20250918
  Transmission Date: 20251020
  Serious: Yes (Hospitalization, Other)
  Sender: JOHNSON AND JOHNSON
  Company Number: NZ-JNJFOC-20250607335

PATIENT
  Age: 6 Decade
  Sex: Male

DRUGS (1)
  1. REMICADE [Suspect]
     Active Substance: INFLIXIMAB
     Indication: Colitis ulcerative
     Route: 041

REACTIONS (6)
  - Psoriasis [Unknown]
  - Cellulitis [Unknown]
  - Malignant melanoma [Unknown]
  - Wrist surgery [Unknown]
  - Colitis ulcerative [Unknown]
  - Arthritis [Unknown]

NARRATIVE: CASE EVENT DATE: 20240101
